FAERS Safety Report 16741067 (Version 1)
Quarter: 2019Q3

REPORT INFORMATION
  Report Type: Spontaneous
  Country: CA (occurrence: CA)
  Receive Date: 20190826
  Receipt Date: 20190826
  Transmission Date: 20191005
  Serious: Yes (Other)
  Sender: FDA-Public Use
  Company Number: CA-PFIZER INC-2019364526

PATIENT
  Age: 70 Year
  Sex: Male

DRUGS (4)
  1. MEDI4736 [Suspect]
     Active Substance: DURVALUMAB
     Indication: PANCREATIC CARCINOMA
     Dosage: 1500 MG, CYCLIC(1 EVERY 28 DAYS)
     Route: 041
  2. GEMCITABINE HYDROCHLORIDE. [Suspect]
     Active Substance: GEMCITABINE HYDROCHLORIDE
     Indication: PANCREATIC CARCINOMA
     Dosage: 2200 MG, CYCLIC (3 EVERY 28 DAYS)
     Route: 041
  3. TICILIMUMAB [Suspect]
     Active Substance: TREMELIMUMAB
     Indication: PANCREATIC CARCINOMA
     Dosage: 75 MG, CYCLIC (1 EVERY 28 DAYS)
     Route: 041
  4. ABRAXANE [Suspect]
     Active Substance: PACLITAXEL
     Indication: PANCREATIC CARCINOMA
     Dosage: 275 MG, CYCLIC (3 EVERY 28 DAYS)
     Route: 041

REACTIONS (2)
  - Pancytopenia [Unknown]
  - Gastrointestinal haemorrhage [Unknown]
